FAERS Safety Report 8293196-5 (Version None)
Quarter: 2012Q2

REPORT INFORMATION
  Report Type: 
  Country: None (occurrence: None)
  Receive Date: 20120417
  Receipt Date: 20110411
  Transmission Date: 20120825
  Serious: No
  Sender: FDA-Public Use
  Company Number: US-ASTRAZENECA-2011SE20356

PATIENT
  Sex: Female

DRUGS (3)
  1. ZANTACT [Concomitant]
  2. NEXIUM [Suspect]
     Indication: HIATUS HERNIA
     Route: 048
  3. PRILOSEC [Suspect]
     Route: 048

REACTIONS (3)
  - HIATUS HERNIA [None]
  - DRUG INEFFECTIVE [None]
  - DYSPEPSIA [None]
